FAERS Safety Report 22979011 (Version 4)
Quarter: 2024Q4

REPORT INFORMATION
  Report Type: Report from Study
  Country: US (occurrence: US)
  Receive Date: 20230925
  Receipt Date: 20241017
  Transmission Date: 20250115
  Serious: Yes (Other)
  Sender: HELSINN HEALTHCARE
  Company Number: US-HBP-2023US029125

PATIENT
  Sex: Female

DRUGS (8)
  1. VALCHLOR [Suspect]
     Active Substance: MECHLORETHAMINE
     Indication: Cutaneous T-cell lymphoma
     Dosage: THIN FILM, QD
     Route: 061
  2. VALCHLOR [Suspect]
     Active Substance: MECHLORETHAMINE
     Dosage: THIN FILM, UNKNOWN
     Route: 061
  3. VALCHLOR [Suspect]
     Active Substance: MECHLORETHAMINE
     Dosage: THIN FILM, UNKNOWN
     Route: 061
  4. VALCHLOR [Suspect]
     Active Substance: MECHLORETHAMINE
     Dosage: THIN FILM, UNKNOWN
     Route: 061
  5. VALCHLOR [Suspect]
     Active Substance: MECHLORETHAMINE
     Dosage: THIN FILM, QD
     Route: 061
  6. CLOBETASOL [Concomitant]
     Active Substance: CLOBETASOL
     Dosage: UNK, UNKNOWN
     Route: 065
     Dates: start: 20220901
  7. HYDRALAZINE HCL [Concomitant]
     Active Substance: HYDRALAZINE HYDROCHLORIDE
     Dosage: UNK, UNKNOWN
  8. ZYRTEC [Concomitant]
     Active Substance: CETIRIZINE HYDROCHLORIDE
     Dosage: UNK, UNKNOWN

REACTIONS (13)
  - Neoplasm [Recovering/Resolving]
  - Lip swelling [Not Recovered/Not Resolved]
  - Application site pain [Not Recovered/Not Resolved]
  - Scab [Unknown]
  - Photosensitivity reaction [Unknown]
  - Amnesia [Not Recovered/Not Resolved]
  - Inappropriate schedule of product administration [Unknown]
  - Product complaint [Unknown]
  - Anxiety [Recovering/Resolving]
  - Headache [Recovering/Resolving]
  - Pruritus [Not Recovered/Not Resolved]
  - Dry skin [Not Recovered/Not Resolved]
  - Drug effect less than expected [Unknown]
